FAERS Safety Report 4376862-3 (Version None)
Quarter: 2004Q2

REPORT INFORMATION
  Report Type: 
  Country: None (occurrence: None)
  Receive Date: 20040608
  Receipt Date: 20030613
  Transmission Date: 20050107
  Serious: Yes (Other)
  Sender: FDA-Public Use
  Company Number: 200312018BCC

PATIENT
  Age: 44 Year
  Sex: Female
  Weight: 122.4712 kg

DRUGS (6)
  1. ALEVE [Suspect]
     Indication: ARTHRALGIA
     Dosage: 440 MG, QD, ORAL
     Route: 048
     Dates: start: 20030609
  2. ALEVE [Suspect]
     Indication: ARTHRITIS
     Dosage: 440 MG, QD, ORAL
     Route: 048
     Dates: start: 20030609
  3. ALEVE [Suspect]
     Indication: MIGRAINE
     Dosage: 440 MG, QD, ORAL
     Route: 048
     Dates: start: 20030609
  4. SYNTHROID [Concomitant]
  5. DIURETIC (NOS) [Concomitant]
  6. NAPROXEN [Concomitant]

REACTIONS (5)
  - ANGIONEUROTIC OEDEMA [None]
  - EYE PRURITUS [None]
  - EYE REDNESS [None]
  - EYE SWELLING [None]
  - SWELLING FACE [None]
